FAERS Safety Report 24894301 (Version 2)
Quarter: 2025Q1

REPORT INFORMATION
  Report Type: Report from Study
  Country: US (occurrence: US)
  Receive Date: 20250128
  Receipt Date: 20250130
  Transmission Date: 20250409
  Serious: No
  Sender: ROCHE
  Company Number: US-ROCHE-10000189655

PATIENT
  Age: 63 Year
  Sex: Female

DRUGS (13)
  1. XOLAIR [Suspect]
     Active Substance: OMALIZUMAB
     Indication: Nasal polyps
     Dosage: MORE DOSAGE INFORMATION IS 150 MG AUTOINJECTOR
     Route: 065
  2. XOLAIR [Suspect]
     Active Substance: OMALIZUMAB
     Dosage: MORE DOSAGE INFORMATION IS 150 MG AUTOINJECTOR
     Route: 065
  3. LOSARTAN [Concomitant]
     Active Substance: LOSARTAN
     Route: 048
  4. HYDROXYZINE HYDROCHLORIDE [Concomitant]
     Active Substance: HYDROXYZINE HYDROCHLORIDE
  5. SYNTHROID [Concomitant]
     Active Substance: LEVOTHYROXINE SODIUM
     Route: 048
  6. LIOTHYRONINE [Concomitant]
     Active Substance: LIOTHYRONINE
  7. ESTRADIOL [Concomitant]
     Active Substance: ESTRADIOL
  8. ALPRAZOLAM [Concomitant]
     Active Substance: ALPRAZOLAM
  9. FERROUS SULFATE [Concomitant]
     Active Substance: FERROUS SULFATE
  10. EPINEPHRINE [Concomitant]
     Active Substance: EPINEPHRINE
  11. NARCAN [Concomitant]
     Active Substance: NALOXONE HYDROCHLORIDE
  12. ALBUTEROL SULFATE [Concomitant]
     Active Substance: ALBUTEROL SULFATE
  13. FLUTICASONE PROPIONATE [Concomitant]
     Active Substance: FLUTICASONE PROPIONATE

REACTIONS (5)
  - Mastocytosis [Unknown]
  - Diarrhoea [Unknown]
  - Abdominal pain [Unknown]
  - Nasal polyps [Unknown]
  - Rhinitis [Unknown]
